FAERS Safety Report 24416838 (Version 2)
Quarter: 2024Q4

REPORT INFORMATION
  Report Type: Spontaneous
  Country: DE (occurrence: DE)
  Receive Date: 20241009
  Receipt Date: 20241224
  Transmission Date: 20250114
  Serious: Yes (Hospitalization, Other)
  Sender: ROCHE
  Company Number: DE-ROCHE-10000097102

PATIENT
  Age: 64 Year
  Sex: Male

DRUGS (1)
  1. OBINUTUZUMAB [Suspect]
     Active Substance: OBINUTUZUMAB
     Indication: Lymphoma
     Dosage: ON 02/SEP/2024, HE RECEIVED HIS LAST INFUSION OF OBINUTUZUMAB
     Route: 065

REACTIONS (16)
  - Hyporesponsive to stimuli [Not Recovered/Not Resolved]
  - Hypertension [Unknown]
  - Tachycardia [Unknown]
  - Stress [Unknown]
  - General physical health deterioration [Unknown]
  - Dysarthria [Unknown]
  - Depressed level of consciousness [Unknown]
  - Movement disorder [Unknown]
  - Epilepsy [Unknown]
  - Coma [Recovered/Resolved]
  - Gastrointestinal infection [Unknown]
  - Speech disorder [Unknown]
  - Quadriparesis [Unknown]
  - Ill-defined disorder [Unknown]
  - Nervous system disorder [Unknown]
  - Cognitive disorder [Unknown]

NARRATIVE: CASE EVENT DATE: 20240901
